FAERS Safety Report 16225856 (Version 2)
Quarter: 2019Q2

REPORT INFORMATION
  Report Type: Report from Study
  Country: US (occurrence: US)
  Receive Date: 20190422
  Receipt Date: 20190514
  Transmission Date: 20190711
  Serious: Yes (Other)
  Sender: FDA-Public Use
  Company Number: PHEH2019US017197

PATIENT
  Sex: Female
  Weight: 104.31 kg

DRUGS (1)
  1. GILENYA [Suspect]
     Active Substance: FINGOLIMOD HYDROCHLORIDE
     Indication: MULTIPLE SCLEROSIS
     Dosage: 0.5 MG, QD
     Route: 048
     Dates: start: 20180921

REACTIONS (5)
  - Aphasia [Unknown]
  - Memory impairment [Unknown]
  - Stress [Unknown]
  - Concomitant disease aggravated [Unknown]
  - Mental impairment [Unknown]
